FAERS Safety Report 5995628-1 (Version None)
Quarter: 2008Q4

REPORT INFORMATION
  Report Type: 
  Country: None (occurrence: None)
  Receive Date: 20081212
  Receipt Date: 20081024
  Transmission Date: 20090506
  Serious: No
  Sender: FDA-Public Use
  Company Number: US-ABBOTT-08P-163-0479472-00

PATIENT
  Sex: Male

DRUGS (1)
  1. HUMIRA [Suspect]
     Indication: CROHN'S DISEASE
     Route: 058
     Dates: start: 20060101, end: 20060101

REACTIONS (9)
  - DIARRHOEA [None]
  - DRUG INEFFECTIVE [None]
  - IMPAIRED HEALING [None]
  - INCREASED TENDENCY TO BRUISE [None]
  - MIGRAINE [None]
  - MUSCLE SPASMS [None]
  - NASOPHARYNGITIS [None]
  - SINUSITIS [None]
  - UNEVALUABLE EVENT [None]
